FAERS Safety Report 16451200 (Version 1)
Quarter: 2019Q3

REPORT INFORMATION
  Report Type: Spontaneous
  Country: CO (occurrence: CO)
  Receive Date: 20190618
  Receipt Date: 20190618
  Transmission Date: 20191004
  Serious: Yes (Other)
  Sender: FDA-Public Use
  Company Number: None

PATIENT
  Age: 22 Year
  Sex: Female
  Weight: 58 kg

DRUGS (2)
  1. SOOLANTRA [Suspect]
     Active Substance: IVERMECTIN
     Indication: ROSACEA
     Dosage: ?          QUANTITY:1 TUBE;?
     Route: 061
     Dates: start: 20190613, end: 20190615
  2. ORACEA [Concomitant]
     Active Substance: DOXYCYCLINE

REACTIONS (2)
  - Application site reaction [None]
  - Rash [None]

NARRATIVE: CASE EVENT DATE: 20190615
